FAERS Safety Report 7568411-3 (Version None)
Quarter: 2011Q2

REPORT INFORMATION
  Report Type: 
  Country: None (occurrence: None)
  Receive Date: 20110623
  Receipt Date: 20110617
  Transmission Date: 20111010
  Serious: Yes (Hospitalization)
  Sender: FDA-Public Use
  Company Number: FI-ROCHE-784349

PATIENT
  Sex: Female

DRUGS (5)
  1. TOCILIZUMAB [Suspect]
     Indication: RHEUMATOID ARTHRITIS
     Route: 065
     Dates: start: 20081201
  2. RITUXIMAB [Suspect]
     Indication: RHEUMATOID ARTHRITIS
     Dosage: TWO COURSES INFUSIONS ,ADMINISTERED ON THE DAYS 1 AND 15
     Route: 042
     Dates: start: 20061129
  3. NALTREXONE HYDROCHLORIDE [Concomitant]
     Indication: RHEUMATOID ARTHRITIS
  4. TOCILIZUMAB [Suspect]
     Route: 065
  5. PREDNISOLONE [Concomitant]
     Indication: RHEUMATOID ARTHRITIS
     Dates: end: 20100101

REACTIONS (4)
  - SYNOVIAL RUPTURE [None]
  - OSTEOARTHRITIS [None]
  - DRUG INEFFECTIVE [None]
  - TOOTH EXTRACTION [None]
